FAERS Safety Report 12396721 (Version 1)
Quarter: 2016Q2

REPORT INFORMATION
  Report Type: Spontaneous
  Country: KW (occurrence: KW)
  Receive Date: 20160524
  Receipt Date: 20160524
  Transmission Date: 20160815
  Serious: Yes (Hospitalization, Other)
  Sender: FDA-Public Use
  Company Number: KW-PAR PHARMACEUTICAL COMPANIES-2016SCPR015468

PATIENT

DRUGS (3)
  1. ATOMOXETINE [Interacting]
     Active Substance: ATOMOXETINE
     Indication: ATTENTION DEFICIT/HYPERACTIVITY DISORDER
     Dosage: 40 MG / DAY (1 WEEK)
     Route: 065
  2. FLUOXETINE [Suspect]
     Active Substance: FLUOXETINE HYDROCHLORIDE
     Indication: MOOD ALTERED
     Dosage: 40 MG / DAY
     Route: 065
  3. ATOMOXETINE [Interacting]
     Active Substance: ATOMOXETINE
     Dosage: 40 MG, BID
     Route: 065

REACTIONS (3)
  - Stress cardiomyopathy [Recovered/Resolved]
  - Drug interaction [Unknown]
  - Product use issue [Unknown]
